FAERS Safety Report 7129088-4 (Version None)
Quarter: 2010Q4

REPORT INFORMATION
  Report Type: 
  Country: None (occurrence: None)
  Receive Date: 20101130
  Receipt Date: 20101115
  Transmission Date: 20110411
  Serious: Yes (Other)
  Sender: FDA-Public Use
  Company Number: ES-US-EMD SERONO, INC.-7027491

PATIENT
  Age: 38 Year
  Sex: Female

DRUGS (1)
  1. INTERFERON BETA-1A [Suspect]
     Indication: MULTIPLE SCLEROSIS
     Dates: start: 19980101

REACTIONS (4)
  - ANAEMIA [None]
  - LEUKOPENIA [None]
  - NEPHROPATHY [None]
  - RETINOPATHY [None]
